FAERS Safety Report 8998298 (Version 2)
Quarter: 2013Q1

REPORT INFORMATION
  Report Type: Spontaneous
  Country: IT (occurrence: IT)
  Receive Date: 20130104
  Receipt Date: 20130108
  Transmission Date: 20140127
  Serious: Yes (Hospitalization)
  Sender: FDA-Public Use
  Company Number: PHHY2012IT121836

PATIENT
  Age: 54 Year
  Sex: Female

DRUGS (1)
  1. DICLOFENAC [Suspect]
     Indication: MYALGIA
     Dosage: 1 DF, PRN
     Route: 048
     Dates: start: 20121001, end: 20121007

REACTIONS (6)
  - Heart rate increased [Unknown]
  - Blood pressure increased [Unknown]
  - Chest pain [Unknown]
  - Haematemesis [Recovering/Resolving]
  - Abdominal pain upper [Recovering/Resolving]
  - Overdose [Recovering/Resolving]
